FAERS Safety Report 10184461 (Version 1)
Quarter: 2014Q2

REPORT INFORMATION
  Report Type: Spontaneous
  Country: DE (occurrence: DE)
  Receive Date: 20140521
  Receipt Date: 20140521
  Transmission Date: 20141212
  Serious: Yes (Other)
  Sender: FDA-Public Use
  Company Number: DE-BIOGENIDEC-2014BI044248

PATIENT
  Age: 40 Year
  Sex: Male

DRUGS (3)
  1. TECFIDERA [Suspect]
     Indication: MULTIPLE SCLEROSIS
     Route: 048
     Dates: start: 20140429, end: 20140430
  2. TEGRETAL [Concomitant]
     Indication: NEURALGIA
     Dates: start: 201403
  3. LYRICA [Concomitant]
     Indication: NEURALGIA
     Dates: start: 201403

REACTIONS (1)
  - Dermatitis allergic [Recovered/Resolved with Sequelae]
